FAERS Safety Report 5570361-9 (Version None)
Quarter: 2007Q4

REPORT INFORMATION
  Report Type: 
  Country: None (occurrence: None)
  Receive Date: 20071219
  Receipt Date: 20071219
  Transmission Date: 20080405
  Serious: Yes (Other)
  Sender: FDA-Public Use
  Company Number: None

PATIENT
  Age: 79 Year
  Sex: Male

DRUGS (2)
  1. VELCADE [Suspect]
     Indication: MANTLE CELL LYMPHOMA
     Dosage: 1.3 MG/M2 DAY 1 + 4 IV BOLUS
     Route: 040
     Dates: start: 20061110, end: 20070305
  2. R-CHOP [Suspect]
     Indication: MANTLE CELL LYMPHOMA
     Dosage: DAY 1
     Dates: start: 20061110, end: 20070302

REACTIONS (1)
  - MALIGNANT URINARY TRACT NEOPLASM [None]
